FAERS Safety Report 7482335-1 (Version None)
Quarter: 2011Q2

REPORT INFORMATION
  Report Type: 
  Country: None (occurrence: None)
  Receive Date: 20110516
  Receipt Date: 20110510
  Transmission Date: 20111010
  Serious: No
  Sender: FDA-Public Use
  Company Number: US-PFIZER INC-2011100037

PATIENT
  Sex: Male

DRUGS (3)
  1. NEURONTIN [Suspect]
     Indication: COMPLEX REGIONAL PAIN SYNDROME
  2. NEURONTIN [Suspect]
     Indication: CARPAL TUNNEL SYNDROME
  3. NEURONTIN [Suspect]
     Indication: NEURALGIA
     Dosage: UNK

REACTIONS (1)
  - DRUG INEFFECTIVE [None]
